FAERS Safety Report 6300457-5 (Version None)
Quarter: 2009Q3

REPORT INFORMATION
  Report Type: 
  Country: None (occurrence: None)
  Receive Date: 20090806
  Receipt Date: 20081218
  Transmission Date: 20100115
  Serious: No
  Sender: FDA-Public Use
  Company Number: US-ABBOTT-08P-163-0493739-00

PATIENT
  Sex: Female
  Weight: 18.16 kg

DRUGS (3)
  1. DEPAKOTE ER [Suspect]
     Indication: CONVULSION
     Dates: start: 20081211
  2. TOPIMAX [Concomitant]
     Indication: CONVULSION
     Dosage: WEANING OFF
     Dates: start: 20080501
  3. TOPIMAX [Concomitant]

REACTIONS (1)
  - PSYCHOMOTOR HYPERACTIVITY [None]
